FAERS Safety Report 7002844-9 (Version None)
Quarter: 2010Q3

REPORT INFORMATION
  Report Type: 
  Country: None (occurrence: None)
  Receive Date: 20100920
  Receipt Date: 20100915
  Transmission Date: 20110219
  Serious: Yes (Hospitalization)
  Sender: FDA-Public Use
  Company Number: GB-EISAI INC.-E2090-01316-SPO-GB

PATIENT
  Age: 37 Year
  Sex: Female

DRUGS (7)
  1. ZONISAMIDE [Suspect]
     Indication: EPILEPSY
     Route: 048
  2. ZONISAMIDE [Suspect]
     Route: 048
  3. CLOBAZAM [Suspect]
     Indication: EPILEPSY
     Dosage: 15 MG DAILY
     Route: 048
  4. CLOBAZAM [Suspect]
     Route: 048
  5. KEPPRA [Suspect]
     Indication: EPILEPSY
     Dosage: 750 MG DAILY
     Route: 048
  6. KEPPRA [Suspect]
     Dosage: 80 TABLETS (STRENGTH UNKNOWN)
     Route: 048
  7. ESCITALOPRAM [Concomitant]
     Route: 048

REACTIONS (2)
  - MULTIPLE DRUG OVERDOSE [None]
  - SOMNOLENCE [None]
